FAERS Safety Report 8153508-X (Version None)
Quarter: 2012Q1

REPORT INFORMATION
  Report Type: 
  Country: None (occurrence: None)
  Receive Date: 20120216
  Receipt Date: 20120216
  Transmission Date: 20120608
  Serious: Yes (Hospitalization)
  Sender: FDA-Public Use
  Company Number: None

PATIENT
  Sex: Female
  Weight: 96.4 kg

DRUGS (1)
  1. ZOMETA [Suspect]
     Dosage: 4 MG
     Dates: start: 20120127

REACTIONS (2)
  - PULMONARY EMBOLISM [None]
  - CARDIAC ARREST [None]
